FAERS Safety Report 6627196-5 (Version None)
Quarter: 2010Q1

REPORT INFORMATION
  Report Type: 
  Country: None (occurrence: None)
  Receive Date: 20100311
  Receipt Date: 20100105
  Transmission Date: 20100710
  Serious: No
  Sender: FDA-Public Use
  Company Number: A0837691A

PATIENT
  Age: 67 Year
  Sex: Male

DRUGS (1)
  1. NICOTINE POLACRILEX [Suspect]
     Dates: end: 20091202

REACTIONS (2)
  - LIP SWELLING [None]
  - OEDEMA MOUTH [None]
